FAERS Safety Report 9704487 (Version 1)
Quarter: 2013Q4

REPORT INFORMATION
  Report Type: Spontaneous
  Country: US (occurrence: None)
  Receive Date: 20131121
  Receipt Date: 20131121
  Transmission Date: 20140711
  Serious: No
  Sender: FDA-Public Use
  Company Number: None

PATIENT
  Sex: Female
  Weight: 74.8 kg

DRUGS (2)
  1. CIPRO [Suspect]
     Indication: INFECTION
     Dosage: 400MG Q12HR IV
     Route: 042
     Dates: start: 20131117, end: 20131119
  2. MEROPENEM [Suspect]
     Dosage: 1 GRAM Q12HR IV
     Route: 042

REACTIONS (1)
  - Product deposit [None]
